FAERS Safety Report 16363226 (Version 1)
Quarter: 2019Q3

REPORT INFORMATION
  Report Type: Spontaneous
  Country: US (occurrence: US)
  Receive Date: 20190527
  Receipt Date: 20190527
  Transmission Date: 20191004
  Serious: Yes (Hospitalization)
  Sender: FDA-Public Use
  Company Number: None

PATIENT
  Age: 80 Year
  Sex: Female

DRUGS (12)
  1. LEVOTHYROXINE TAB 75MCG [Concomitant]
  2. ALBUTEROL NEB 0.083% [Concomitant]
  3. FLUOXETINE TAB 40MG [Concomitant]
  4. TADALAFIL. [Suspect]
     Active Substance: TADALAFIL
     Indication: PULMONARY HYPERTENSION
     Route: 048
  5. ESTRADIOL CRE 0.01% [Concomitant]
  6. FUROSEMIDE 40MG TAB [Concomitant]
  7. METOPROLOL SUC TAB 25MG ER [Concomitant]
  8. DIGOX TAB 0.125MG [Concomitant]
  9. SPIRONOLACTONE TAB 25MG [Concomitant]
  10. ALLOPURINOL TAB 300MG [Concomitant]
  11. FLUOXETINE TAB 20MG [Concomitant]
  12. SOD CHLOR NEB 7% [Concomitant]

REACTIONS (2)
  - Malignant splenic neoplasm [None]
  - Pneumonia [None]

NARRATIVE: CASE EVENT DATE: 20190506
